FAERS Safety Report 9993202 (Version 1)
Quarter: 2014Q1

REPORT INFORMATION
  Report Type: Report from Study
  Country: US (occurrence: US)
  Receive Date: 20140310
  Receipt Date: 20140310
  Transmission Date: 20141002
  Serious: No
  Sender: FDA-Public Use
  Company Number: US-ABBVIE-14P-163-1202938-00

PATIENT
  Age: 46 Year
  Sex: Female

DRUGS (7)
  1. LUPRON DEPOT [Suspect]
     Indication: ENDOMETRIOSIS
     Dates: start: 20131106, end: 20131203
  2. LUPRON DEPOT [Suspect]
     Indication: ADHESION
  3. SYNTHROID [Concomitant]
     Indication: PRODUCT USED FOR UNKNOWN INDICATION
  4. IMITREX [Concomitant]
     Indication: PRODUCT USED FOR UNKNOWN INDICATION
  5. ZYRTEC [Concomitant]
     Indication: PRODUCT USED FOR UNKNOWN INDICATION
  6. ALLERGY INJECTIONS [Concomitant]
     Indication: PRODUCT USED FOR UNKNOWN INDICATION
  7. UNKNOWN MEDICATION [Concomitant]
     Indication: PRODUCT USED FOR UNKNOWN INDICATION

REACTIONS (27)
  - Abdominal distension [Recovering/Resolving]
  - Abdominal pain [Not Recovered/Not Resolved]
  - Pelvic pain [Not Recovered/Not Resolved]
  - Back pain [Not Recovered/Not Resolved]
  - Hot flush [Not Recovered/Not Resolved]
  - Night sweats [Recovered/Resolved]
  - Dizziness [Not Recovered/Not Resolved]
  - Dyspepsia [Recovering/Resolving]
  - Dry eye [Recovering/Resolving]
  - Vision blurred [Recovering/Resolving]
  - Dry mouth [Not Recovered/Not Resolved]
  - Mood altered [Not Recovered/Not Resolved]
  - Crying [Not Recovered/Not Resolved]
  - Depression [Not Recovered/Not Resolved]
  - Labyrinthitis [Not Recovered/Not Resolved]
  - Palpitations [Recovering/Resolving]
  - Blood pressure increased [Recovering/Resolving]
  - Tinnitus [Not Recovered/Not Resolved]
  - Burning sensation [Recovered/Resolved]
  - Vulvovaginal dryness [Recovered/Resolved]
  - Libido decreased [Recovered/Resolved]
  - Arthralgia [Not Recovered/Not Resolved]
  - Arthralgia [Not Recovered/Not Resolved]
  - Memory impairment [Not Recovered/Not Resolved]
  - Confusional state [Not Recovered/Not Resolved]
  - Headache [Recovering/Resolving]
  - Skeletal injury [Unknown]
